FAERS Safety Report 7930456-9 (Version None)
Quarter: 2011Q4

REPORT INFORMATION
  Report Type: 
  Country: None (occurrence: None)
  Receive Date: 20111121
  Receipt Date: 20111013
  Transmission Date: 20120403
  Serious: No
  Sender: FDA-Public Use
  Company Number: US-ENDO PHARMACEUTICALS INC.-PREV20110035

PATIENT
  Age: 19 Year
  Sex: Female

DRUGS (1)
  1. PREVIFEM [Suspect]
     Indication: CONTRACEPTION
     Route: 048

REACTIONS (6)
  - PRODUCT QUALITY ISSUE [None]
  - CERVICAL DYSPLASIA [None]
  - EXPOSURE TO COMMUNICABLE DISEASE [None]
  - ABORTION INDUCED [None]
  - PREGNANCY ON ORAL CONTRACEPTIVE [None]
  - DRUG INEFFECTIVE [None]
